FAERS Safety Report 22068867 (Version 1)
Quarter: 2023Q1

REPORT INFORMATION
  Report Type: Spontaneous
  Country: US (occurrence: US)
  Receive Date: 20230307
  Receipt Date: 20230307
  Transmission Date: 20230417
  Serious: No
  Sender: FDA-Public Use
  Company Number: US-AMNEAL PHARMACEUTICALS-2022-AMRX-01329

PATIENT
  Sex: Female

DRUGS (1)
  1. RYTARY [Suspect]
     Active Substance: CARBIDOPA\LEVODOPA
     Indication: Product used for unknown indication
     Dosage: 48.75/195MG, 4 CAPSULE 5 TIMES A DAY
     Route: 048

REACTIONS (7)
  - Back pain [Unknown]
  - Freezing phenomenon [Unknown]
  - Condition aggravated [Unknown]
  - Propulsive gait [Unknown]
  - Fatigue [Unknown]
  - Alopecia [Unknown]
  - Intentional product use issue [Unknown]
